FAERS Safety Report 10062733 (Version 3)
Quarter: 2014Q2

REPORT INFORMATION
  Report Type: Spontaneous
  Country: FR (occurrence: FR)
  Receive Date: 20140407
  Receipt Date: 20140620
  Transmission Date: 20141212
  Serious: Yes (Hospitalization)
  Sender: FDA-Public Use
  Company Number: FR-GLAXOSMITHKLINE-B0980496A

PATIENT
  Age: 63 Year
  Sex: Male
  Weight: 85 kg

DRUGS (15)
  1. VOTRIENT [Suspect]
     Indication: RENAL CANCER METASTATIC
     Dosage: 200MG UNKNOWN
     Route: 048
     Dates: start: 20140314, end: 20140323
  2. VENTOLINE [Concomitant]
     Dosage: 1.25MG UNKNOWN
     Route: 055
  3. INEXIUM [Concomitant]
     Dosage: 40MG UNKNOWN
     Route: 065
  4. PLAVIX [Concomitant]
     Dosage: 75MG UNKNOWN
     Route: 065
  5. COVERSYL [Concomitant]
     Dosage: 5MG UNKNOWN
     Route: 065
  6. FLUDEX LP [Concomitant]
     Dosage: 1.5MG UNKNOWN
     Route: 065
  7. CRESTOR [Concomitant]
     Dosage: 5MG UNKNOWN
     Route: 065
  8. ZYLORIC [Concomitant]
     Dosage: 200MG UNKNOWN
     Route: 065
  9. MIRTAZAPINE [Concomitant]
     Dosage: 15MG UNKNOWN
     Route: 065
  10. DEPAMIDE [Concomitant]
     Dosage: 300MG UNKNOWN
     Route: 065
  11. LOVENOX [Concomitant]
     Dosage: .4ML UNKNOWN
     Route: 065
  12. ATROVENT [Concomitant]
     Dosage: .5MG UNKNOWN
     Route: 065
  13. MOVICOL [Concomitant]
     Route: 065
  14. INSTARYL [Concomitant]
     Route: 065
  15. DUROGESIC [Concomitant]
     Dosage: 25MG UNKNOWN
     Route: 065

REACTIONS (2)
  - Erythema [Recovered/Resolved]
  - Recall phenomenon [Recovered/Resolved]
